FAERS Safety Report 5251979-X (Version None)
Quarter: 2007Q1

REPORT INFORMATION
  Report Type: 
  Country: None (occurrence: None)
  Receive Date: 20070223
  Receipt Date: 20070216
  Transmission Date: 20070707
  Serious: Yes (Death)
  Sender: FDA-Public Use
  Company Number: 163-20785-07011303

PATIENT
  Age: 84 Year
  Sex: Male

DRUGS (2)
  1. THALOMID [Suspect]
     Indication: PROSTATE CANCER
     Dosage: 300 MG, 6 IN 1 D, ORAL
     Route: 048
     Dates: start: 20060628
  2. THALOMID [Suspect]

REACTIONS (3)
  - CARDIOPULMONARY FAILURE [None]
  - MALIGNANT NEOPLASM PROGRESSION [None]
  - PROSTATE CANCER [None]
